FAERS Safety Report 12549668 (Version 2)
Quarter: 2016Q3

REPORT INFORMATION
  Report Type: Spontaneous
  Country: JP (occurrence: JP)
  Receive Date: 20160712
  Receipt Date: 20160719
  Transmission Date: 20161109
  Serious: Yes (Other)
  Sender: FDA-Public Use
  Company Number: JP-ASTELLAS-2016JP011411

PATIENT
  Age: 91 Year
  Sex: Male

DRUGS (3)
  1. MEROPENEM. [Concomitant]
     Active Substance: MEROPENEM
     Indication: DEVICE RELATED INFECTION
     Dosage: UNK UNK, UNKNOWN FREQ.
     Route: 065
  2. VANCOMYCIN [Concomitant]
     Active Substance: VANCOMYCIN
     Indication: DEVICE RELATED INFECTION
     Dosage: UNK UNK, UNKNOWN FREQ.
     Route: 065
  3. FUNGUARD [Suspect]
     Active Substance: MICAFUNGIN SODIUM
     Indication: DEVICE RELATED INFECTION
     Dosage: UNK UNK, UNKNOWN FREQ.
     Route: 065

REACTIONS (1)
  - Nephrogenic diabetes insipidus [Not Recovered/Not Resolved]
